FAERS Safety Report 15655210 (Version 2)
Quarter: 2018Q4

REPORT INFORMATION
  Report Type: Spontaneous
  Country: IT (occurrence: IT)
  Receive Date: 20181126
  Receipt Date: 20181206
  Transmission Date: 20190205
  Serious: Yes (Death, Hospitalization)
  Sender: FDA-Public Use
  Company Number: IT-ELI_LILLY_AND_COMPANY-IT201811008934

PATIENT
  Age: 34 Year
  Sex: Male

DRUGS (1)
  1. ZYPADHERA [Suspect]
     Active Substance: OLANZAPINE PAMOATE
     Indication: SCHIZOPHRENIA
     Dosage: 405 MG, SINGLE
     Route: 030
     Dates: start: 20181113, end: 20181113

REACTIONS (7)
  - Agitation [Fatal]
  - Hyperhidrosis [Fatal]
  - Confusional state [Fatal]
  - Dysarthria [Fatal]
  - Headache [Fatal]
  - Disorientation [Fatal]
  - Restlessness [Fatal]

NARRATIVE: CASE EVENT DATE: 20181113
